FAERS Safety Report 5000707-1 (Version None)
Quarter: 2006Q2

REPORT INFORMATION
  Report Type: 
  Country: None (occurrence: None)
  Receive Date: 20060512
  Receipt Date: 20060502
  Transmission Date: 20061013
  Serious: Yes (Hospitalization)
  Sender: FDA-Public Use
  Company Number: FR-BRISTOL-MYERS SQUIBB COMPANY-13367065

PATIENT
  Age: 66 Year
  Sex: Male

DRUGS (7)
  1. COAPROVEL TABS 300MG/12.5MG [Suspect]
     Indication: HYPERTENSION
     Route: 048
     Dates: end: 20060324
  2. METFORMIN HYDROCHLORIDE [Suspect]
     Indication: DIABETES MELLITUS NON-INSULIN-DEPENDENT
     Dates: end: 20060324
  3. ZANIDIP [Suspect]
     Indication: HYPERTENSION
  4. LEVOTHYROX [Suspect]
  5. AMARYL [Suspect]
     Indication: DIABETES MELLITUS NON-INSULIN-DEPENDENT
     Dates: end: 20060324
  6. TAHOR [Suspect]
     Indication: HYPERCHOLESTEROLAEMIA
  7. ALFACALCIDOL [Concomitant]
     Dates: end: 20060324

REACTIONS (1)
  - RENAL FAILURE ACUTE [None]
